FAERS Safety Report 8481729 (Version 3)
Quarter: 2021Q4

REPORT INFORMATION
  Report Type: Spontaneous
  Country: DE (occurrence: DE)
  Receive Date: 20120329
  Receipt Date: 20211230
  Transmission Date: 20220303
  Serious: Yes (Other)
  Sender: FDA-Public Use
  Company Number: None

PATIENT
  Age: 80 Year
  Sex: Female

DRUGS (25)
  1. SERTRALINE [Suspect]
     Active Substance: SERTRALINE HYDROCHLORIDE
     Indication: Product used for unknown indication
     Dosage: 100 MILLIGRAM, QD
     Route: 048
     Dates: start: 20110920, end: 20120101
  2. SERTRALINE [Suspect]
     Active Substance: SERTRALINE HYDROCHLORIDE
     Dosage: 50 MILLIGRAM, QD
     Route: 048
     Dates: start: 20110915, end: 20110919
  3. HALOPERIDOL [Suspect]
     Active Substance: HALOPERIDOL
     Indication: Product used for unknown indication
     Dosage: 1 MILLIGRAM, QD
     Route: 048
     Dates: start: 20110913, end: 20110914
  4. HALOPERIDOL [Suspect]
     Active Substance: HALOPERIDOL
     Dosage: 0.5 MILLIGRAM, QD
     Route: 048
     Dates: start: 20110906, end: 20110912
  5. QUETIAPINE [Suspect]
     Active Substance: QUETIAPINE
     Indication: Product used for unknown indication
     Dosage: 125 MILLIGRAM, QD
     Route: 048
     Dates: start: 20110830, end: 20110901
  6. QUETIAPINE [Suspect]
     Active Substance: QUETIAPINE
     Dosage: 25 MILLIGRAM, QD
     Route: 048
     Dates: start: 20110822, end: 20110825
  7. QUETIAPINE [Suspect]
     Active Substance: QUETIAPINE
     Dosage: 50 MILLIGRAM, QD
     Route: 048
     Dates: start: 20110826, end: 20110829
  8. QUETIAPINE [Suspect]
     Active Substance: QUETIAPINE
     Dosage: 250 MILLIGRAM, QD
     Route: 048
     Dates: start: 20110912
  9. QUETIAPINE [Suspect]
     Active Substance: QUETIAPINE
     Dosage: 175 MILLIGRAM, QD
     Route: 048
     Dates: start: 20110902, end: 20110905
  10. QUETIAPINE [Suspect]
     Active Substance: QUETIAPINE
     Dosage: 225 MILLIGRAM, QD
     Route: 048
     Dates: start: 20110906, end: 20110911
  11. LITHIUM [Suspect]
     Active Substance: LITHIUM
     Indication: Product used for unknown indication
     Dosage: 675 MILLIGRAM, QD
     Route: 048
     Dates: start: 20110922
  12. LITHIUM [Suspect]
     Active Substance: LITHIUM
     Dosage: 450 MILLIGRAM, QD
     Route: 048
     Dates: start: 20110914, end: 20110921
  13. LITHIUM [Suspect]
     Active Substance: LITHIUM
     Dosage: 450 MILLIGRAM, QD
     Route: 048
     Dates: start: 20110725, end: 20110725
  14. LITHIUM [Suspect]
     Active Substance: LITHIUM
     Dosage: 225 MILLIGRAM, QD
     Route: 048
     Dates: start: 20110726, end: 20110811
  15. ASPIRIN [Suspect]
     Active Substance: ASPIRIN
     Indication: Product used for unknown indication
     Dosage: 80 MILLIGRAM, QD
     Route: 048
     Dates: start: 20110826, end: 20110904
  16. ASPIRIN [Suspect]
     Active Substance: ASPIRIN
     Dosage: 120 MILLIGRAM
     Route: 048
     Dates: start: 20110905, end: 20110914
  17. ASPIRIN [Suspect]
     Active Substance: ASPIRIN
     Dosage: 120 MILLIGRAM, QD
     Route: 048
     Dates: start: 20110722, end: 20110825
  18. AGOMELATINE [Suspect]
     Active Substance: AGOMELATINE
     Indication: Product used for unknown indication
     Dosage: 25 MILLIGRAM, QD
     Route: 048
     Dates: start: 20110811, end: 20110817
  19. AGOMELATINE [Suspect]
     Active Substance: AGOMELATINE
     Dosage: 50 MILLIGRAM, QD
     Route: 048
     Dates: start: 20110818, end: 20110914
  20. POLYETHYLENE GLYCOLS [Concomitant]
     Active Substance: POLYETHYLENE GLYCOLS
     Indication: Product used for unknown indication
     Dosage: 1 DOSAGE FORM
  21. PHENPROCOUMON [Concomitant]
     Active Substance: PHENPROCOUMON
     Indication: Product used for unknown indication
     Dosage: 1.5 MILLIGRAM, QD
     Route: 048
     Dates: start: 20110722, end: 20111012
  22. LISINOPRIL [Concomitant]
     Active Substance: LISINOPRIL
     Indication: Product used for unknown indication
     Dosage: 10 MILLIGRAM, QD
     Route: 048
     Dates: start: 20110811, end: 20110826
  23. LISINOPRIL [Concomitant]
     Active Substance: LISINOPRIL
     Dosage: 5 MILLIGRAM, QD
     Route: 048
     Dates: start: 20110827, end: 20111012
  24. LISINOPRIL [Concomitant]
     Active Substance: LISINOPRIL
     Dosage: 20 MILLIGRAM, QD
     Route: 048
     Dates: start: 20110722, end: 20110810
  25. ALENDRONAT [Concomitant]
     Active Substance: ALENDRONATE SODIUM
     Indication: Product used for unknown indication
     Dosage: 70 MILLIGRAM
     Route: 048

REACTIONS (3)
  - Dysphagia [Recovered/Resolved]
  - Gait inability [Recovered/Resolved]
  - Salivary hypersecretion [Recovered/Resolved]

NARRATIVE: CASE EVENT DATE: 20110914
